FAERS Safety Report 20966537 (Version 1)
Quarter: 2022Q2

REPORT INFORMATION
  Report Type: Report from Study
  Country: US (occurrence: US)
  Receive Date: 20220616
  Receipt Date: 20220616
  Transmission Date: 20220721
  Serious: Yes (Other)
  Sender: FDA-Public Use
  Company Number: US-MYLANLABS-2022M1045189

PATIENT
  Age: 5 Decade
  Sex: Male

DRUGS (23)
  1. LEUCOVORIN [Suspect]
     Active Substance: LEUCOVORIN
     Indication: Adenocarcinoma of colon
     Dosage: UNK, CYCLE (8 CYCLES OF ADJUVANT CHEMOTHERAPY; FOLFOX  )
  2. LEUCOVORIN [Suspect]
     Active Substance: LEUCOVORIN
     Indication: Metastases to liver
     Dosage: FOLFIRI REGIMEN
     Dates: start: 2016
  3. FLUOROURACIL [Suspect]
     Active Substance: FLUOROURACIL
     Indication: Adenocarcinoma of colon
     Dosage: UNK, CYCLE (8 CYCLES OF ADJUVANT CHEMOTHERAPY; FOLFOX)
  4. FLUOROURACIL [Suspect]
     Active Substance: FLUOROURACIL
     Indication: Metastases to liver
     Dosage: FOLFIRI REGIMEN
     Dates: start: 2016
  5. OXALIPLATIN [Suspect]
     Active Substance: OXALIPLATIN
     Indication: Adenocarcinoma of colon
     Dosage: UNK, CYCLE (8 CYCLES OF ADJUVANT CHEMOTHERAPY; FOLFOX)
  6. IRINOTECAN [Suspect]
     Active Substance: IRINOTECAN
     Indication: Adenocarcinoma of colon
     Dosage: FOLFIRI REGIMEN
     Dates: start: 2016
  7. IRINOTECAN [Suspect]
     Active Substance: IRINOTECAN
     Indication: Metastases to liver
  8. BEVACIZUMAB [Suspect]
     Active Substance: BEVACIZUMAB
     Indication: Adenocarcinoma of colon
     Dosage: FOLFIRI REGIMEN
     Dates: start: 2016
  9. BEVACIZUMAB [Suspect]
     Active Substance: BEVACIZUMAB
     Indication: Metastases to liver
  10. VEMURAFENIB [Suspect]
     Active Substance: VEMURAFENIB
     Indication: Adenocarcinoma of colon
     Dosage: TARGETED AGENT AND PROFILING UTILIZATION REGISTRY STUDY (TAPUR)
  11. VEMURAFENIB [Suspect]
     Active Substance: VEMURAFENIB
     Indication: Metastases to liver
     Dosage: A SECOND TREATMENT COURSE
  12. COBIMETINIB [Suspect]
     Active Substance: COBIMETINIB
     Indication: Adenocarcinoma of colon
     Dosage: TARGETED AGENT AND PROFILING UTILIZATION REGISTRY STUDY (TAPUR)
  13. COBIMETINIB [Suspect]
     Active Substance: COBIMETINIB
     Indication: Metastases to liver
     Dosage: A SECOND TREATMENT COURSE
  14. CETUXIMAB [Suspect]
     Active Substance: CETUXIMAB
     Indication: Adenocarcinoma of colon
     Dosage: UNK
  15. CETUXIMAB [Suspect]
     Active Substance: CETUXIMAB
     Indication: Metastases to liver
  16. BINIMETINIB [Suspect]
     Active Substance: BINIMETINIB
     Indication: Adenocarcinoma of colon
     Dosage: UNK
  17. BINIMETINIB [Suspect]
     Active Substance: BINIMETINIB
     Indication: Metastases to liver
  18. ENCORAFENIB [Suspect]
     Active Substance: ENCORAFENIB
     Indication: Adenocarcinoma of colon
     Dosage: UNK
  19. ENCORAFENIB [Suspect]
     Active Substance: ENCORAFENIB
     Indication: Metastases to liver
  20. IPILIMUMAB [Suspect]
     Active Substance: IPILIMUMAB
     Indication: Adenocarcinoma of colon
     Dosage: TARGETED AGENT AND PROFILING UTILIZATION REGISTRY STUDY (TAPUR)
  21. IPILIMUMAB [Suspect]
     Active Substance: IPILIMUMAB
     Indication: Metastases to liver
  22. DABRAFENIB\TRAMETINIB [Suspect]
     Active Substance: DABRAFENIB\TRAMETINIB
     Indication: Adenocarcinoma of colon
     Dosage: UNK
  23. DABRAFENIB\TRAMETINIB [Suspect]
     Active Substance: DABRAFENIB\TRAMETINIB
     Indication: Metastases to liver

REACTIONS (1)
  - Drug ineffective [Unknown]
